FAERS Safety Report 12250563 (Version 4)
Quarter: 2018Q3

REPORT INFORMATION
  Report Type: Spontaneous
  Country: US (occurrence: US)
  Receive Date: 20160408
  Receipt Date: 20180814
  Transmission Date: 20181010
  Serious: No
  Sender: FDA-Public Use
  Company Number: US-PFIZER INC-2016196196

PATIENT
  Age: 68 Year
  Sex: Female
  Weight: 69 kg

DRUGS (1)
  1. CELEBREX [Suspect]
     Active Substance: CELECOXIB
     Dosage: 400 MG, DAILY (2 OF THEM A DAY)

REACTIONS (5)
  - Fall [Unknown]
  - Disturbance in attention [Unknown]
  - Paraesthesia [Unknown]
  - Pain [Not Recovered/Not Resolved]
  - Gait disturbance [Unknown]
